FAERS Safety Report 8449755-X (Version None)
Quarter: 2012Q2

REPORT INFORMATION
  Report Type: 
  Country: None (occurrence: None)
  Receive Date: 20120613
  Receipt Date: 20120607
  Transmission Date: 20120825
  Serious: Yes (Other)
  Sender: FDA-Public Use
  Company Number: USA/USA/12/0024603

PATIENT
  Age: 60 Year
  Sex: Female
  Weight: 86.1834 kg

DRUGS (4)
  1. FISH OIL (FISH OIL) [Concomitant]
  2. ACETAMINOPHEN [Concomitant]
  3. FEXOFENADINE HYDROCHLORIDE [Suspect]
     Indication: HYPERSENSITIVITY
     Dosage: 180 MG, 1 IN 1 D, ORAL
     Route: 048
     Dates: start: 20120524, end: 20120605
  4. CRANBERRY PILL (VACCINIUM MACROCARPON) [Concomitant]

REACTIONS (1)
  - HYPERTENSION [None]
